APPROVED DRUG PRODUCT: URSO 250
Active Ingredient: URSODIOL
Strength: 250MG
Dosage Form/Route: TABLET;ORAL
Application: N020675 | Product #001
Applicant: ABBVIE INC
Approved: Dec 10, 1997 | RLD: Yes | RS: No | Type: DISCN